FAERS Safety Report 7433767-9 (Version None)
Quarter: 2011Q2

REPORT INFORMATION
  Report Type: 
  Country: None (occurrence: None)
  Receive Date: 20110425
  Receipt Date: 20110413
  Transmission Date: 20111010
  Serious: Yes (Hospitalization)
  Sender: FDA-Public Use
  Company Number: US-BIOGENIDEC-2011BI002103

PATIENT
  Age: 60 Year
  Sex: Female

DRUGS (5)
  1. NORVASC [Concomitant]
  2. REMERON [Concomitant]
     Route: 048
  3. WELLBUTRIN XL [Concomitant]
  4. ARICEPT [Concomitant]
  5. TYSABRI [Suspect]
     Indication: MULTIPLE SCLEROSIS
     Route: 042
     Dates: start: 20090406

REACTIONS (1)
  - INFLUENZA [None]
